FAERS Safety Report 4482083-6 (Version None)
Quarter: 2004Q4

REPORT INFORMATION
  Report Type: 
  Country: None (occurrence: None)
  Receive Date: 20041022
  Receipt Date: 20041014
  Transmission Date: 20050328
  Serious: Yes (Other)
  Sender: FDA-Public Use
  Company Number: 200417914US

PATIENT
  Sex: Female

DRUGS (4)
  1. ARAVA [Suspect]
     Indication: RHEUMATOID ARTHRITIS
     Route: 048
     Dates: start: 20031217, end: 20040905
  2. BIRTH CONTROL PILLS NOS [Concomitant]
     Dosage: DOSE: UNK
  3. PREDNISONE [Concomitant]
     Route: 048
  4. NAPROXEN [Concomitant]
     Dosage: DOSE: UNK

REACTIONS (4)
  - ABORTION SPONTANEOUS [None]
  - DRUG EXPOSURE DURING PREGNANCY [None]
  - HAEMORRHAGE [None]
  - PREGNANCY ON ORAL CONTRACEPTIVE [None]
